FAERS Safety Report 4416038-4 (Version None)
Quarter: 2004Q3

REPORT INFORMATION
  Report Type: 
  Country: None (occurrence: None)
  Receive Date: 20040803
  Receipt Date: 20040803
  Transmission Date: 20050211
  Serious: No
  Sender: FDA-Public Use
  Company Number: None

PATIENT
  Sex: Male
  Weight: 68.0396 kg

DRUGS (3)
  1. ENALAPRIL MALEATE 20 MG TABS MFR: TARO PHARMACEUTICAL [Suspect]
     Indication: HYPERTENSION
     Dosage: PO TWICE DAILY
     Route: 048
     Dates: start: 20040508, end: 20040618
  2. GLYBURIDE [Concomitant]
  3. MOBIC [Concomitant]

REACTIONS (1)
  - PHARMACEUTICAL PRODUCT COMPLAINT [None]
